FAERS Safety Report 10353358 (Version 1)
Quarter: 2014Q3

REPORT INFORMATION
  Report Type: Report from Study
  Country: ES (occurrence: ES)
  Receive Date: 20140731
  Receipt Date: 20140731
  Transmission Date: 20150326
  Serious: Yes (Other)
  Sender: FDA-Public Use
  Company Number: ES-ROCHE-1439259

PATIENT
  Sex: Female

DRUGS (3)
  1. TRASTUZUMAB [Suspect]
     Active Substance: TRASTUZUMAB
     Indication: HER-2 POSITIVE BREAST CANCER
     Route: 065
  2. BEZ235 (PI3K/MTOR INHIBITOR) [Suspect]
     Active Substance: DACTOLISIB
     Indication: HER-2 POSITIVE BREAST CANCER
     Dosage: 600 MG/D (5 PATIENTS) AND 400 MG/D (6 PATIENTS) PER DAY.
     Route: 065
  3. PACLITAXEL. [Suspect]
     Active Substance: PACLITAXEL
     Indication: HER-2 POSITIVE BREAST CANCER
     Route: 065

REACTIONS (3)
  - Neurotoxicity [Unknown]
  - Lymphopenia [Unknown]
  - Neutropenia [Unknown]
